FAERS Safety Report 7970879-5 (Version None)
Quarter: 2011Q4

REPORT INFORMATION
  Report Type: 
  Country: None (occurrence: None)
  Receive Date: 20111212
  Receipt Date: 20111205
  Transmission Date: 20120403
  Serious: Yes (Hospitalization)
  Sender: FDA-Public Use
  Company Number: IT-GLAXOSMITHKLINE-B0768532A

PATIENT
  Age: 61 Year

DRUGS (1)
  1. ZANTAC [Suspect]
     Indication: CHEMOTHERAPY
     Route: 042
     Dates: start: 20111108, end: 20111108

REACTIONS (6)
  - SUFFOCATION FEELING [None]
  - AGITATION [None]
  - CYANOSIS [None]
  - BACK PAIN [None]
  - ERYTHEMA [None]
  - OXYGEN SATURATION DECREASED [None]
